FAERS Safety Report 17071919 (Version 4)
Quarter: 2020Q4

REPORT INFORMATION
  Report Type: Spontaneous
  Country: CA (occurrence: CA)
  Receive Date: 20191125
  Receipt Date: 20201130
  Transmission Date: 20210113
  Serious: Yes (Other)
  Sender: FDA-Public Use
  Company Number: CA-OTSUKA-2019_023231

PATIENT
  Age: 21 Year
  Sex: Male
  Weight: 58 kg

DRUGS (6)
  1. ABILIFY [Suspect]
     Active Substance: ARIPIPRAZOLE
     Indication: BIPOLAR DISORDER
     Dosage: 10 MG, QD
     Route: 048
  2. ATIVAN [Suspect]
     Active Substance: LORAZEPAM
     Indication: PRODUCT USED FOR UNKNOWN INDICATION
     Dosage: UNK
     Route: 065
     Dates: end: 201906
  3. ABILIFY MAINTENA [Suspect]
     Active Substance: ARIPIPRAZOLE
     Indication: BIPOLAR DISORDER
     Dosage: 400 MG, (EVERY 30 DAYS)
     Route: 065
     Dates: end: 201906
  4. HALDOL [Suspect]
     Active Substance: HALOPERIDOL
     Indication: INSOMNIA
     Dosage: UNK
     Route: 065
     Dates: end: 201906
  5. OLANZAPINE. [Suspect]
     Active Substance: OLANZAPINE
     Indication: PRODUCT USED FOR UNKNOWN INDICATION
     Dosage: UNK
     Route: 065
     Dates: end: 201906
  6. HALDOL [Suspect]
     Active Substance: HALOPERIDOL
     Indication: SLEEP DISORDER

REACTIONS (16)
  - Abdominal discomfort [Not Recovered/Not Resolved]
  - Malaise [Not Recovered/Not Resolved]
  - Drug abuse [Not Recovered/Not Resolved]
  - Hypoaesthesia [Not Recovered/Not Resolved]
  - Constipation [Not Recovered/Not Resolved]
  - Anxiety [Not Recovered/Not Resolved]
  - Gastric disorder [Not Recovered/Not Resolved]
  - Respiration abnormal [Not Recovered/Not Resolved]
  - Self-injurious ideation [Not Recovered/Not Resolved]
  - Fear [Not Recovered/Not Resolved]
  - Suicidal ideation [Not Recovered/Not Resolved]
  - Paraesthesia [Not Recovered/Not Resolved]
  - Intentional self-injury [Not Recovered/Not Resolved]
  - Feeling abnormal [Not Recovered/Not Resolved]
  - Insomnia [Not Recovered/Not Resolved]
  - Drug interaction [Unknown]

NARRATIVE: CASE EVENT DATE: 201906
